FAERS Safety Report 20216607 (Version 2)
Quarter: 2022Q1

REPORT INFORMATION
  Report Type: Report from Study
  Country: US (occurrence: US)
  Receive Date: 20211222
  Receipt Date: 20220218
  Transmission Date: 20220423
  Serious: No
  Sender: FDA-Public Use
  Company Number: US-CELGENE-USA-20211205443

PATIENT
  Age: 40 Year
  Sex: Female

DRUGS (2)
  1. REVLIMID [Suspect]
     Active Substance: LENALIDOMIDE
     Indication: Scleroderma
     Dosage: 5 MILLIGRAM
     Route: 048
     Dates: start: 20210527
  2. REVLIMID [Suspect]
     Active Substance: LENALIDOMIDE
     Indication: Illness

REACTIONS (1)
  - COVID-19 [Recovered/Resolved]

NARRATIVE: CASE EVENT DATE: 20211215
